FAERS Safety Report 15472399 (Version 1)
Quarter: 2018Q4

REPORT INFORMATION
  Report Type: Spontaneous
  Country: US (occurrence: US)
  Receive Date: 20181008
  Receipt Date: 20181008
  Transmission Date: 20190205
  Serious: Yes (Other)
  Sender: FDA-Public Use
  Company Number: US-ZYDUS-028906

PATIENT
  Age: 46 Year
  Sex: Female

DRUGS (2)
  1. TOPIRAMATE. [Suspect]
     Active Substance: TOPIRAMATE
     Indication: HEADACHE
     Route: 065
  2. ACETAZOLAMIDE. [Suspect]
     Active Substance: ACETAZOLAMIDE
     Indication: PAPILLOEDEMA
     Route: 065

REACTIONS (6)
  - Weight increased [Unknown]
  - Visual impairment [Unknown]
  - Intracranial hypotension [Recovering/Resolving]
  - Condition aggravated [Recovering/Resolving]
  - Nausea [Unknown]
  - Cognitive disorder [Unknown]
